FAERS Safety Report 4624425-4 (Version None)
Quarter: 2005Q1

REPORT INFORMATION
  Report Type: 
  Country: None (occurrence: None)
  Receive Date: 20050330
  Receipt Date: 20050330
  Transmission Date: 20050727
  Serious: Yes (Hospitalization)
  Sender: FDA-Public Use
  Company Number: None

PATIENT
  Age: 58 Year
  Sex: Female
  Weight: 104.2 kg

DRUGS (5)
  1. TAXOL [Suspect]
     Indication: BREAST CANCER
     Dosage: 172 MG WEEKLY INTRAVENOUS
     Route: 042
     Dates: start: 20050125, end: 20050315
  2. PROTONIX [Concomitant]
  3. HYDROCHLOROTHIAZIDE [Concomitant]
  4. COMPAZINE [Concomitant]
  5. ATIVAN [Concomitant]

REACTIONS (1)
  - CHOLECYSTITIS ACUTE [None]
